FAERS Safety Report 9283356 (Version 1)
Quarter: 2013Q2

REPORT INFORMATION
  Report Type: Spontaneous
  Country: US (occurrence: US)
  Receive Date: 20130510
  Receipt Date: 20130510
  Transmission Date: 20140414
  Serious: Yes (Hospitalization)
  Sender: FDA-Public Use
  Company Number: US-BAYER-2013-057004

PATIENT
  Age: 24 Year
  Sex: Female

DRUGS (3)
  1. BEYAZ [Suspect]
  2. ADVIL [Concomitant]
  3. MOTRIN [Concomitant]

REACTIONS (6)
  - Jugular vein thrombosis [None]
  - Pulmonary embolism [None]
  - Subclavian vein thrombosis [Recovered/Resolved]
  - Axillary vein thrombosis [None]
  - Deep vein thrombosis [Recovered/Resolved]
  - Thrombophlebitis superficial [None]
